FAERS Safety Report 8443840-4 (Version None)
Quarter: 2012Q2

REPORT INFORMATION
  Report Type: 
  Country: None (occurrence: None)
  Receive Date: 20120618
  Receipt Date: 20120605
  Transmission Date: 20120825
  Serious: Yes (Hospitalization)
  Sender: FDA-Public Use
  Company Number: US-BAYER-2012-057231

PATIENT
  Age: 28 Year
  Sex: Female
  Weight: 70.295 kg

DRUGS (8)
  1. CETIRIZINE [Concomitant]
     Indication: RASH
     Dosage: 10 MG, UNK
     Route: 048
  2. TRAMADOL HCL [Concomitant]
     Dosage: 50 MG,TID
     Dates: start: 20100617, end: 20100623
  3. AMOXICILLIN [Concomitant]
     Dosage: 875 MG, UNK
     Route: 048
  4. IBUPROFEN [Concomitant]
     Indication: PAIN
     Dosage: UNK UNK, PRN
     Route: 048
  5. OMEPRAZOLE [Concomitant]
     Dosage: 20 MG, OM
  6. TRIAMCINOLONE [Concomitant]
     Dosage: 0.1% OINTMENT APPLY SMALL AMOUNT TO RASH BID +#8211; TID, PRN
     Route: 061
  7. OMEPRAZOLE [Concomitant]
     Dosage: 20 MG, BID
  8. YAZ [Suspect]
     Indication: CONTRACEPTION
     Dosage: UNK
     Dates: start: 20090904, end: 20100617

REACTIONS (5)
  - PAIN [None]
  - PAIN IN EXTREMITY [None]
  - DEEP VEIN THROMBOSIS [None]
  - INJURY [None]
  - OEDEMA PERIPHERAL [None]
